FAERS Safety Report 5587255-5 (Version None)
Quarter: 2008Q1

REPORT INFORMATION
  Report Type: 
  Country: None (occurrence: None)
  Receive Date: 20080110
  Receipt Date: 20080102
  Transmission Date: 20080703
  Serious: Yes (Hospitalization, Other)
  Sender: FDA-Public Use
  Company Number: US-ELI_LILLY_AND_COMPANY-US200710003058

PATIENT
  Sex: Female

DRUGS (7)
  1. BYETTA [Suspect]
     Dosage: 5 MG, 2/D
     Route: 058
     Dates: start: 20070905, end: 20070901
  2. METFORMIN HCL [Concomitant]
     Dosage: 1000 MG, 2/D
     Route: 048
  3. HYDROCHLOROTHIAZIDE [Concomitant]
     Indication: FLUID RETENTION
     Dosage: 25 MG, DAILY (1/D)
     Route: 048
     Dates: start: 20070701
  4. ASPIRIN [Concomitant]
     Indication: CARDIAC DISORDER
     Dosage: 81 MG, DAILY (1/D)
     Route: 048
  5. LIPITOR [Concomitant]
     Indication: BLOOD CHOLESTEROL INCREASED
     Dosage: 20 MG, DAILY (1/D)
     Route: 048
  6. LEVOTHYROXINE SODIUM [Concomitant]
     Indication: THYROID DISORDER
     Dosage: 200 UG, DAILY (1/D)
     Route: 048
  7. ANTIBIOTICS [Concomitant]
     Indication: INFECTION
     Dates: start: 20070901

REACTIONS (8)
  - BLOOD GLUCOSE INCREASED [None]
  - BLOOD PRESSURE INCREASED [None]
  - DEAFNESS UNILATERAL [None]
  - DEHYDRATION [None]
  - EAR INFECTION [None]
  - KETOACIDOSIS [None]
  - LOSS OF CONSCIOUSNESS [None]
  - VOMITING [None]
